FAERS Safety Report 8491906-5 (Version None)
Quarter: 2012Q3

REPORT INFORMATION
  Report Type: 
  Country: None (occurrence: None)
  Receive Date: 20120706
  Receipt Date: 20111212
  Transmission Date: 20120928
  Serious: No
  Sender: FDA-Public Use
  Company Number: US-GLAXOSMITHKLINE-A0957698A

PATIENT
  Sex: Female

DRUGS (2)
  1. FLOVENT [Suspect]
     Indication: ASTHMA
     Dosage: 1PUFF TWICE PER DAY
     Route: 055
  2. PROAIR HFA [Concomitant]

REACTIONS (5)
  - RHINORRHOEA [None]
  - PRODUCTIVE COUGH [None]
  - MALAISE [None]
  - WHEEZING [None]
  - UPPER RESPIRATORY TRACT INFECTION [None]
